FAERS Safety Report 5217655-4 (Version None)
Quarter: 2006Q4

REPORT INFORMATION
  Report Type: 
  Country: None (occurrence: None)
  Receive Date: 20061130
  Receipt Date: 20060526
  Transmission Date: 20070319
  Serious: Yes (Hospitalization)
  Sender: FDA-Public Use
  Company Number: US200511001280

PATIENT
  Age: 46 Year
  Sex: Female
  Weight: 71.2 kg

DRUGS (12)
  1. ZYPREXA [Suspect]
     Dosage: SEE IMAGE
     Route: 048
     Dates: start: 19930101
  2. ZYPREXA [Suspect]
     Dosage: SEE IMAGE
     Route: 048
     Dates: start: 20010101
  3. ZYPREXA [Suspect]
     Dosage: SEE IMAGE
     Route: 048
     Dates: start: 20050101
  4. ZYPREXA [Suspect]
     Dosage: SEE IMAGE
     Route: 048
     Dates: start: 20060101
  5. PROZAC [Concomitant]
  6. SYMBYAX [Concomitant]
  7. RISPERIDONE [Concomitant]
  8. HALDOL SOLUTAB [Concomitant]
  9. DIVALPROEX SODIUM [Concomitant]
  10. LITHIUM CARBONATE [Concomitant]
  11. TOFRANIL-PM (IMIPRAMINE EMBONATE) [Concomitant]
  12. SERTRALINE [Concomitant]

REACTIONS (12)
  - ACETONAEMIA [None]
  - CEREBROVASCULAR ACCIDENT [None]
  - DIABETES MELLITUS [None]
  - EMOTIONAL DISTRESS [None]
  - GENERAL PHYSICAL HEALTH DETERIORATION [None]
  - HYPERTENSION [None]
  - KETONURIA [None]
  - MUSCLE DISORDER [None]
  - OBESITY [None]
  - VISION BLURRED [None]
  - WEIGHT DECREASED [None]
  - WEIGHT INCREASED [None]
